FAERS Safety Report 8141305-0 (Version None)
Quarter: 2012Q1

REPORT INFORMATION
  Report Type: 
  Country: None (occurrence: None)
  Receive Date: 20120216
  Receipt Date: 20120206
  Transmission Date: 20120608
  Serious: Yes (Life-Threatening, Hospitalization, Other)
  Sender: FDA-Public Use
  Company Number: FR-ELI_LILLY_AND_COMPANY-FR201110006359

PATIENT
  Sex: Male

DRUGS (8)
  1. IMOVANE [Concomitant]
     Indication: DEPRESSION
     Route: 048
  2. TEGRETOL [Concomitant]
     Indication: EPILEPSY
     Dosage: UNK
     Dates: start: 20110824, end: 20110901
  3. URBANYL [Concomitant]
     Indication: EPILEPSY
  4. AOTAL [Concomitant]
     Indication: ALCOHOLISM
     Dosage: 333 MG, UNKNOWN
     Route: 048
  5. VALIUM [Concomitant]
     Indication: DEPRESSION
     Route: 048
  6. CYMBALTA [Suspect]
     Indication: DEPRESSION
     Dosage: 60 MG, QD
     Route: 048
     Dates: start: 20110824, end: 20110923
  7. EFFEXOR [Concomitant]
     Indication: DEPRESSION
  8. CHLORPROMAZINE HCL [Concomitant]
     Indication: DEPRESSION

REACTIONS (8)
  - ASPARTATE AMINOTRANSFERASE INCREASED [None]
  - TOXIC EPIDERMAL NECROLYSIS [None]
  - STEVENS-JOHNSON SYNDROME [None]
  - GAMMA-GLUTAMYLTRANSFERASE INCREASED [None]
  - BLOOD CREATINE PHOSPHOKINASE INCREASED [None]
  - C-REACTIVE PROTEIN INCREASED [None]
  - ALANINE AMINOTRANSFERASE INCREASED [None]
  - OPTIC NERVE CUPPING [None]
